FAERS Safety Report 6143852-X (Version None)
Quarter: 2009Q2

REPORT INFORMATION
  Report Type: 
  Country: None (occurrence: None)
  Receive Date: 20090403
  Receipt Date: 20090331
  Transmission Date: 20091009
  Serious: Yes (Hospitalization)
  Sender: FDA-Public Use
  Company Number: GB-MERCK-0904GBR00004

PATIENT
  Age: 81 Year
  Sex: Female

DRUGS (8)
  1. FOSAMAX [Suspect]
     Indication: PROPHYLAXIS
     Route: 048
     Dates: end: 20090316
  2. AMLODIPINE [Concomitant]
     Route: 048
  3. ASPIRIN [Concomitant]
     Route: 048
  4. CALCIUM CARBONATE AND CHOLECALCIFEROL [Concomitant]
     Route: 065
  5. DOCUSATE SODIUM [Concomitant]
     Route: 065
  6. SENNA [Concomitant]
     Route: 065
  7. SIMVASTATIN [Concomitant]
     Route: 048
  8. TINZAPARIN SODIUM [Concomitant]
     Route: 065
     Dates: start: 20090306, end: 20090316

REACTIONS (2)
  - GASTROINTESTINAL HAEMORRHAGE [None]
  - OESOPHAGEAL ULCER [None]
